FAERS Safety Report 7628501-3 (Version None)
Quarter: 2011Q3

REPORT INFORMATION
  Report Type: 
  Country: None (occurrence: None)
  Receive Date: 20110721
  Receipt Date: 20110721
  Transmission Date: 20111222
  Serious: Yes (Life-Threatening, Hospitalization)
  Sender: FDA-Public Use
  Company Number: None

PATIENT
  Age: 61 Year
  Sex: Male
  Weight: 86.6 kg

DRUGS (2)
  1. ASPIRIN [Suspect]
     Indication: SURGERY
     Dosage: 81 MG EVERY DAY PO
     Route: 048
  2. NIACIN [Suspect]
     Indication: HYPERLIPIDAEMIA
     Dosage: 500 MG EVERY DAY PO
     Route: 048
     Dates: start: 20090417, end: 20110416

REACTIONS (12)
  - GASTROINTESTINAL HAEMORRHAGE [None]
  - GASTRITIS [None]
  - HYPOVOLAEMIC SHOCK [None]
  - HAEMORRHAGE [None]
  - ANAEMIA [None]
  - ASTHENIA [None]
  - SYNCOPE [None]
  - HAEMOGLOBIN DECREASED [None]
  - RENAL FAILURE ACUTE [None]
  - DIZZINESS [None]
  - OESOPHAGEAL ULCER [None]
  - HAEMATEMESIS [None]
